FAERS Safety Report 4686322-8 (Version None)
Quarter: 2005Q2

REPORT INFORMATION
  Report Type: 
  Country: None (occurrence: None)
  Receive Date: 20050609
  Receipt Date: 20050207
  Transmission Date: 20051028
  Serious: Yes (Other)
  Sender: FDA-Public Use
  Company Number: PHEH2005US01812

PATIENT
  Age: 59 Year
  Sex: Female

DRUGS (2)
  1. AREDIA [Suspect]
  2. ZOLEDRONATE [Suspect]

REACTIONS (6)
  - ASEPTIC NECROSIS BONE [None]
  - BONE DISORDER [None]
  - OSTEONECROSIS [None]
  - PALLIATIVE CARE [None]
  - TOOTH EXTRACTION [None]
  - WOUND DEBRIDEMENT [None]
